FAERS Safety Report 7275247-X (Version None)
Quarter: 2011Q1

REPORT INFORMATION
  Report Type: 
  Country: None (occurrence: None)
  Receive Date: 20110204
  Receipt Date: 20110127
  Transmission Date: 20110831
  Serious: Yes (Hospitalization, Other)
  Sender: FDA-Public Use
  Company Number: GB-PFIZER INC-2010154160

PATIENT
  Sex: Female

DRUGS (1)
  1. SOMATROPIN [Suspect]
     Dosage: UNK

REACTIONS (1)
  - MENTAL DISORDER [None]
